APPROVED DRUG PRODUCT: MECLIZINE HYDROCHLORIDE
Active Ingredient: MECLIZINE HYDROCHLORIDE
Strength: 25MG
Dosage Form/Route: TABLET;ORAL
Application: A087128 | Product #001 | TE Code: AA
Applicant: APNAR PHARMA LP
Approved: Approved Prior to Jan 1, 1982 | RLD: No | RS: No | Type: RX